FAERS Safety Report 8904809 (Version 1)
Quarter: 2012Q4

REPORT INFORMATION
  Report Type: 
  Country: NL (occurrence: NL)
  Receive Date: 20121113
  Receipt Date: 20121113
  Transmission Date: 20130627
  Serious: Yes (Other)
  Sender: FDA-Public Use
  Company Number: NL-MERCK-1211NLD003508

PATIENT
  Age: 13 Year
  Sex: Female

DRUGS (2)
  1. NOXAFIL [Suspect]
     Indication: ACUTE LYMPHOCYTIC LEUKAEMIA
     Dosage: 120 mg, tid
     Route: 048
  2. METHOTREXATE [Concomitant]

REACTIONS (2)
  - Hyperbilirubinaemia [Unknown]
  - Off label use [Unknown]
